FAERS Safety Report 20106440 (Version 5)
Quarter: 2022Q1

REPORT INFORMATION
  Report Type: Spontaneous
  Country: US (occurrence: US)
  Receive Date: 20211124
  Receipt Date: 20220119
  Transmission Date: 20220423
  Serious: Yes (Hospitalization, Other)
  Sender: FDA-Public Use
  Company Number: US-ORGANON-O2111USA002087

PATIENT
  Sex: Female
  Weight: 59.864 kg

DRUGS (2)
  1. NEXPLANON [Suspect]
     Active Substance: ETONOGESTREL
     Indication: Contraception
     Dosage: 1 IMPLANT, LEFT UPPER ARM
     Route: 059
     Dates: start: 2016, end: 20211029
  2. NEXPLANON [Suspect]
     Active Substance: ETONOGESTREL
     Dosage: 1 IMPLANT, LEFT UPPER ARM
     Route: 059
     Dates: start: 2018, end: 20211029

REACTIONS (8)
  - Surgery [Unknown]
  - Complication of device removal [Recovered/Resolved with Sequelae]
  - Device issue [Recovered/Resolved with Sequelae]
  - Device deployment issue [Recovered/Resolved with Sequelae]
  - Overdose [Unknown]
  - Device use issue [Recovered/Resolved with Sequelae]
  - Incorrect product administration duration [Unknown]
  - No adverse event [Unknown]

NARRATIVE: CASE EVENT DATE: 20180101
